FAERS Safety Report 19410194 (Version 1)
Quarter: 2021Q2

REPORT INFORMATION
  Report Type: Spontaneous
  Country: US (occurrence: US)
  Receive Date: 20210614
  Receipt Date: 20210614
  Transmission Date: 20210717
  Serious: No
  Sender: FDA-Public Use
  Company Number: NVSC2021US127582

PATIENT
  Sex: Female

DRUGS (2)
  1. FAMODITINE [Concomitant]
     Active Substance: FAMOTIDINE
     Indication: PRODUCT USED FOR UNKNOWN INDICATION
     Dosage: UNK
     Route: 065
  2. LATANOPROST. [Suspect]
     Active Substance: LATANOPROST
     Indication: PRODUCT USED FOR UNKNOWN INDICATION
     Dosage: 1 DRP (AT BEDTIME)
     Route: 065
     Dates: start: 20210529

REACTIONS (3)
  - Ocular discomfort [Unknown]
  - Photophobia [Unknown]
  - Ocular hyperaemia [Unknown]
